FAERS Safety Report 4363808-7 (Version None)
Quarter: 2004Q2

REPORT INFORMATION
  Report Type: 
  Country: None (occurrence: None)
  Receive Date: 20040521
  Receipt Date: 20040510
  Transmission Date: 20050107
  Serious: Yes (Hospitalization, Disabling)
  Sender: FDA-Public Use
  Company Number: 2004196390CH

PATIENT
  Sex: Male

DRUGS (3)
  1. SULFASALAZINE [Suspect]
     Indication: PSORIATIC ARTHROPATHY
     Dosage: 1 G, BID, ORAL
     Route: 048
     Dates: start: 20031209, end: 20040101
  2. BRUFEN-SLOW RELEASE (IBUPROFEN) [Suspect]
     Indication: PSORIATIC ARTHROPATHY
     Dosage: 800MG/DAY, ORAL
     Route: 048
     Dates: start: 20031201, end: 20040101
  3. PEVISONE (ECONAZOLE NITRATE) [Concomitant]

REACTIONS (10)
  - ALANINE AMINOTRANSFERASE INCREASED [None]
  - C-REACTIVE PROTEIN INCREASED [None]
  - DRUG ERUPTION [None]
  - LEUKOPENIA [None]
  - PAIN [None]
  - PRURITUS [None]
  - PYREXIA [None]
  - RASH MACULO-PAPULAR [None]
  - T-CELL LYMPHOMA [None]
  - THROMBOCYTOPENIA [None]
